FAERS Safety Report 7829229-7 (Version None)
Quarter: 2011Q4

REPORT INFORMATION
  Report Type: 
  Country: None (occurrence: None)
  Receive Date: 20111020
  Receipt Date: 20111006
  Transmission Date: 20120403
  Serious: Yes (Hospitalization)
  Sender: FDA-Public Use
  Company Number: US-BAYER-2010-008991

PATIENT
  Age: 37 Year
  Sex: Female
  Weight: 95.23 kg

DRUGS (4)
  1. PROVENTIL [Concomitant]
     Indication: ASTHMA
     Dosage: UNK
     Dates: start: 19980101
  2. NEXIUM [Concomitant]
     Indication: GASTRIC DISORDER
     Dosage: UNK
     Dates: start: 20040101, end: 20080101
  3. ACIPHEX [Concomitant]
     Indication: GASTRIC DISORDER
     Dosage: UNK
     Dates: start: 20080101, end: 20090101
  4. YAZ [Suspect]
     Indication: CONTRACEPTION
     Dosage: UNK
     Dates: start: 20040101, end: 20080101

REACTIONS (4)
  - DEEP VEIN THROMBOSIS [None]
  - INJURY [None]
  - MENTAL DISORDER [None]
  - PAIN [None]
